FAERS Safety Report 19817098 (Version 1)
Quarter: 2021Q3

REPORT INFORMATION
  Report Type: Spontaneous
  Country: US (occurrence: US)
  Receive Date: 20210910
  Receipt Date: 20210910
  Transmission Date: 20211014
  Serious: No
  Sender: FDA-Public Use
  Company Number: US-MYLANLABS-2021M1058360

PATIENT
  Sex: Female
  Weight: 86 kg

DRUGS (2)
  1. LIDOCAINE PATCH [Suspect]
     Active Substance: LIDOCAINE
     Indication: PSORIATIC ARTHROPATHY
  2. LIDOCAINE PATCH [Suspect]
     Active Substance: LIDOCAINE
     Indication: PAIN IN EXTREMITY
     Dosage: ONE FOR 10?12 HOURS A DAY
     Route: 003

REACTIONS (3)
  - Product adhesion issue [Unknown]
  - Off label use [Unknown]
  - Product quality issue [Unknown]
